FAERS Safety Report 4283142-3 (Version None)
Quarter: 2004Q1

REPORT INFORMATION
  Report Type: 
  Country: None (occurrence: None)
  Receive Date: 20040129
  Receipt Date: 20040123
  Transmission Date: 20041129
  Serious: Yes (Death)
  Sender: FDA-Public Use
  Company Number: CA-JNJFOC-20040104382

PATIENT
  Age: 53 Year
  Sex: Male
  Weight: 60 kg

DRUGS (6)
  1. ITRACONAZOLE [Suspect]
     Indication: TRICHOSPORON INFECTION
     Dosage: 200 MG , 1 IN 1 DAY, INTRAVENOUS
     Route: 042
     Dates: start: 20040101, end: 20040121
  2. CYCLOSPORINE [Concomitant]
  3. PREDNISONE [Concomitant]
  4. GANCICLOVIR SODIUM [Concomitant]
  5. PANTOPRAZOLE (PATNOPRAZOLE) [Concomitant]
  6. SEPTRA DS [Concomitant]

REACTIONS (2)
  - SPLENIC HAEMORRHAGE [None]
  - VASCULAR PSEUDOANEURYSM RUPTURED [None]
